FAERS Safety Report 13970268 (Version 1)
Quarter: 2017Q3

REPORT INFORMATION
  Report Type: Spontaneous
  Country: GB (occurrence: GB)
  Receive Date: 20170914
  Receipt Date: 20170914
  Transmission Date: 20171128
  Serious: Yes (Life-Threatening, Hospitalization)
  Sender: FDA-Public Use
  Company Number: GB-PFIZER INC-2017396818

PATIENT
  Age: 75 Year
  Sex: Female
  Weight: 46 kg

DRUGS (8)
  1. FLUCLOXACILLIN [Suspect]
     Active Substance: FLUCLOXACILLIN
     Indication: CELLULITIS
     Dosage: 2 G, UNK 6TH DOSE.
     Route: 042
     Dates: start: 20170813, end: 20170814
  2. RAMIPRIL. [Concomitant]
     Active Substance: RAMIPRIL
     Dosage: 5 MG, UNK CONTINUING.
     Route: 048
  3. DOXYCYCLINE MONOHYDRATE [Suspect]
     Active Substance: DOXYCYCLINE
     Indication: CELLULITIS
     Dosage: 100 MG, UNK 6TH DOSE.
     Route: 048
     Dates: start: 20170814, end: 20170814
  4. TARGOCID [Suspect]
     Active Substance: TEICOPLANIN
     Indication: CELLULITIS
     Dosage: 300 MG, UNK 6TH DOSE.
     Route: 042
     Dates: start: 20170814, end: 20170814
  5. TAMOXIFEN [Concomitant]
     Active Substance: TAMOXIFEN
     Dosage: 20 MG, UNK CONTINUING.
     Route: 048
  6. ATORVASTATIN [Concomitant]
     Active Substance: ATORVASTATIN
     Dosage: 20 MG, UNK CONTINUING.
     Route: 048
  7. AMITRIPTYLINE [Concomitant]
     Active Substance: AMITRIPTYLINE
     Dosage: 20 MG, UNK CONTINUING.
     Route: 048
  8. OMEPRAZOLE. [Concomitant]
     Active Substance: OMEPRAZOLE
     Dosage: 20 MG, UNK CONTINUING.
     Route: 048

REACTIONS (4)
  - Hypertension [Recovering/Resolving]
  - Lip swelling [Recovering/Resolving]
  - Swollen tongue [Recovering/Resolving]
  - Paraesthesia [Recovering/Resolving]

NARRATIVE: CASE EVENT DATE: 20170814
